FAERS Safety Report 23634560 (Version 2)
Quarter: 2024Q1

REPORT INFORMATION
  Report Type: Other
  Country: GB (occurrence: GB)
  Receive Date: 20240315
  Receipt Date: 20240315
  Transmission Date: 20240410
  Serious: Yes (Hospitalization, Other)
  Sender: FDA-Public Use
  Company Number: None

PATIENT

DRUGS (2)
  1. PREDNISOLONE [Suspect]
     Active Substance: PREDNISOLONE
     Indication: Product used for unknown indication
     Dosage: 8 DOSAGE FORM
     Route: 065
  2. NEFOPAM [Suspect]
     Active Substance: NEFOPAM
     Indication: Back pain
     Dosage: 3 DOSAGE FORM DAILY
     Route: 065
     Dates: start: 20240222

REACTIONS (13)
  - Swollen tongue [Unknown]
  - Ocular hyperaemia [Unknown]
  - Gait disturbance [Unknown]
  - Feeling cold [Unknown]
  - Pyrexia [Unknown]
  - Cold sweat [Unknown]
  - Pyrexia [Unknown]
  - Acne [Unknown]
  - Lethargy [Unknown]
  - Dizziness [Unknown]
  - Diarrhoea [Recovered/Resolved]
  - Hypertension [Unknown]
  - Anaphylactic reaction [Unknown]

NARRATIVE: CASE EVENT DATE: 20240226
